FAERS Safety Report 5766713-4 (Version None)
Quarter: 2008Q2

REPORT INFORMATION
  Report Type: 
  Country: None (occurrence: None)
  Receive Date: 20080610
  Receipt Date: 20080610
  Transmission Date: 20081010
  Serious: Yes (Other)
  Sender: FDA-Public Use
  Company Number: None

PATIENT
  Sex: Male
  Weight: 113.3 kg

DRUGS (13)
  1. DAPTOMYCIN 500 MG CUBIST [Suspect]
     Indication: WOUND INFECTION
     Dosage: 450 MG Q 24 HOURS IV
     Route: 042
     Dates: start: 20080524, end: 20080604
  2. AMLODIPINE [Concomitant]
  3. ENOXAPARIN SODIUM [Concomitant]
  4. NOVOLOG SLIDING SCALE [Concomitant]
  5. INSULIN INSULATARD NPH NORDISK [Concomitant]
  6. METFORMIN HCL [Concomitant]
  7. OMEPRAZOLE [Concomitant]
  8. OXYCONTIN [Concomitant]
  9. FLORASTOR [Concomitant]
  10. SITAGLIPTIN [Concomitant]
  11. VALSARTIN [Concomitant]
  12. METHOCARBAMOL [Concomitant]
  13. RIFAMPIN [Concomitant]

REACTIONS (1)
  - BLOOD CREATINE PHOSPHOKINASE INCREASED [None]
